FAERS Safety Report 5375017-3 (Version None)
Quarter: 2007Q2

REPORT INFORMATION
  Report Type: 
  Country: None (occurrence: None)
  Receive Date: 20070629
  Receipt Date: 20070502
  Transmission Date: 20071010
  Serious: No
  Sender: FDA-Public Use
  Company Number: A0649697A

PATIENT
  Age: 69 Year
  Sex: Female

DRUGS (9)
  1. FLOVENT [Suspect]
     Indication: EMPHYSEMA
     Route: 055
  2. SPIRIVA [Concomitant]
  3. AMIODARONE [Concomitant]
  4. PRIMIDONE [Concomitant]
  5. FOSAMAX [Concomitant]
  6. PAIN MEDICATION [Concomitant]
  7. ALBUTEROL [Concomitant]
  8. ZOLOFT [Concomitant]
  9. ATENOLOL [Concomitant]

REACTIONS (2)
  - DYSPNOEA [None]
  - PHARMACEUTICAL PRODUCT COMPLAINT [None]
